FAERS Safety Report 5410586-6 (Version None)
Quarter: 2007Q3

REPORT INFORMATION
  Report Type: 
  Country: None (occurrence: None)
  Receive Date: 20070810
  Receipt Date: 20070327
  Transmission Date: 20080115
  Serious: No
  Sender: FDA-Public Use
  Company Number: A0644838A

PATIENT
  Age: 59 Year
  Sex: Male

DRUGS (3)
  1. PAXIL [Suspect]
     Indication: DEPRESSION
     Dosage: 40MG PER DAY
     Route: 048
     Dates: start: 20070101, end: 20070201
  2. HYDROCODONE BITARTRATE [Concomitant]
  3. TYLENOL (CAPLET) [Concomitant]

REACTIONS (1)
  - ERECTILE DYSFUNCTION [None]
